FAERS Safety Report 19882140 (Version 1)
Quarter: 2021Q3

REPORT INFORMATION
  Report Type: Report from Study
  Country: US (occurrence: US)
  Receive Date: 20210924
  Receipt Date: 20210924
  Transmission Date: 20211014
  Serious: Yes (Other)
  Sender: FDA-Public Use
  Company Number: US-TAKEDA-2020TUS035919

PATIENT
  Sex: Female

DRUGS (7)
  1. PREDNISONE. [Suspect]
     Active Substance: PREDNISONE
     Indication: POSTURAL ORTHOSTATIC TACHYCARDIA SYNDROME
     Dosage: UNK
     Route: 065
  2. VEDOLIZUMAB [Suspect]
     Active Substance: VEDOLIZUMAB
     Indication: POUCHITIS
     Dosage: 300 MILLIGRAM, Q8WEEKS
     Route: 042
     Dates: start: 20180101
  3. HUMIRA [Suspect]
     Active Substance: ADALIMUMAB
     Indication: PRODUCT USED FOR UNKNOWN INDICATION
     Dosage: UNK
     Route: 065
     Dates: start: 2011
  4. VEDOLIZUMAB [Suspect]
     Active Substance: VEDOLIZUMAB
     Indication: COLITIS ULCERATIVE
  5. PREDNISONE. [Suspect]
     Active Substance: PREDNISONE
     Indication: BLOOD PRESSURE MANAGEMENT
  6. VEDOLIZUMAB [Suspect]
     Active Substance: VEDOLIZUMAB
     Indication: CROHN^S DISEASE
  7. LIALDA [Suspect]
     Active Substance: MESALAMINE
     Indication: COLITIS ULCERATIVE
     Dosage: UNK
     Route: 065
     Dates: start: 2012

REACTIONS (13)
  - Cartilage injury [Unknown]
  - Oropharyngeal pain [Recovered/Resolved]
  - Anal abscess [Unknown]
  - Renal function test abnormal [Unknown]
  - Dyspepsia [Recovered/Resolved]
  - Osteopenia [Unknown]
  - Exposure via breast milk [Unknown]
  - Lymphadenopathy [Unknown]
  - Adrenal insufficiency [Unknown]
  - Cataract [Unknown]
  - Pregnancy [Unknown]
  - Sinus disorder [Recovered/Resolved]
  - Off label use [Unknown]

NARRATIVE: CASE EVENT DATE: 2012
